FAERS Safety Report 19355764 (Version 3)
Quarter: 2021Q4

REPORT INFORMATION
  Report Type: Report from Study
  Country: KR (occurrence: KR)
  Receive Date: 20210602
  Receipt Date: 20211121
  Transmission Date: 20220303
  Serious: Yes (Hospitalization, Other)
  Sender: FDA-Public Use
  Company Number: KR-KYOWAKIRIN-2021AKK008936

PATIENT
  Age: 46 Year
  Sex: Male

DRUGS (35)
  1. FILGRASTIM [Suspect]
     Active Substance: FILGRASTIM
     Indication: Product used for unknown indication
     Dosage: UNK, QD (300)
     Route: 065
     Dates: start: 20160919, end: 20160923
  2. FILGRASTIM [Suspect]
     Active Substance: FILGRASTIM
     Dosage: 150 UNK, QD
     Route: 065
     Dates: start: 20160905, end: 20160906
  3. DARBEPOETIN ALFA [Concomitant]
     Active Substance: DARBEPOETIN ALFA
     Indication: Product used for unknown indication
     Dosage: 380 MG, QD
     Dates: start: 20160817, end: 20160817
  4. APREPITANT [Concomitant]
     Active Substance: APREPITANT
     Indication: Product used for unknown indication
     Dosage: 150 MILLIGRAM
  5. APREPITANT [Concomitant]
     Active Substance: APREPITANT
     Dosage: 150 MILLIGRAM, QD
     Dates: start: 20160817, end: 20160817
  6. APREPITANT [Concomitant]
     Active Substance: APREPITANT
     Dosage: 150 MILLIGRAM, QD
     Dates: start: 20160907, end: 20160907
  7. CISPLATIN [Concomitant]
     Active Substance: CISPLATIN
     Indication: Product used for unknown indication
     Dosage: 109 MILLIGRAM, QD
     Dates: start: 20160719, end: 20160719
  8. CISPLATIN [Concomitant]
     Active Substance: CISPLATIN
     Dosage: 111.3 MILLIGRAM, QD
     Dates: start: 20160817, end: 20160817
  9. CISPLATIN [Concomitant]
     Active Substance: CISPLATIN
     Dosage: 114 MILLIGRAM, QD
     Dates: start: 20160907, end: 20160907
  10. DEXAMETHASONE [Concomitant]
     Active Substance: DEXAMETHASONE
     Indication: Product used for unknown indication
     Dosage: 4 MILLIGRAM, QD
     Dates: start: 20160720, end: 20160722
  11. DEXAMETHASONE [Concomitant]
     Active Substance: DEXAMETHASONE
     Dosage: 4 MILLIGRAM, QD
     Dates: start: 20160818, end: 20160820
  12. DEXAMETHASONE [Concomitant]
     Active Substance: DEXAMETHASONE
     Dosage: 4 MILLIGRAM, QD
     Dates: start: 20160908, end: 20160910
  13. DEXAMETHASONE [Concomitant]
     Active Substance: DEXAMETHASONE
     Dosage: 12 MILLIGRAM, QD
     Dates: start: 20160719, end: 20160719
  14. DEXAMETHASONE [Concomitant]
     Active Substance: DEXAMETHASONE
     Dosage: 12 MILLIGRAM, QD
     Dates: start: 20160817, end: 20160817
  15. DEXAMETHASONE [Concomitant]
     Active Substance: DEXAMETHASONE
     Dosage: 12 MILLIGRAM, QD
     Dates: start: 20160907, end: 20160907
  16. ESOMEPRAZOLE [Concomitant]
     Active Substance: ESOMEPRAZOLE
     Indication: Product used for unknown indication
     Dosage: 40 MILLIGRAM, QD
     Dates: start: 20160905, end: 20160906
  17. ESOMEPRAZOLE [Concomitant]
     Active Substance: ESOMEPRAZOLE
     Dosage: 40 MILLIGRAM, QD
     Dates: start: 20160907, end: 20161009
  18. ETOPOSIDE [Concomitant]
     Active Substance: ETOPOSIDE
     Indication: Product used for unknown indication
     Dosage: 157 MILLIGRAM, QD
     Dates: start: 20160719, end: 20160721
  19. ETOPOSIDE [Concomitant]
     Active Substance: ETOPOSIDE
     Dosage: 159 MILLIGRAM, QD
     Dates: start: 20160817, end: 20160819
  20. ETOPOSIDE [Concomitant]
     Active Substance: ETOPOSIDE
     Dosage: 164 MILLIGRAM, QD
     Dates: start: 20160907, end: 20160909
  21. FUROSEMIDE [Concomitant]
     Active Substance: FUROSEMIDE
     Indication: Product used for unknown indication
     Dosage: 20 MILLIGRAM, QD
     Dates: start: 20160719, end: 20160719
  22. FUROSEMIDE [Concomitant]
     Active Substance: FUROSEMIDE
     Dosage: 20 MILLIGRAM, QD
     Dates: start: 20160817, end: 20160817
  23. FUROSEMIDE [Concomitant]
     Active Substance: FUROSEMIDE
     Dosage: 20 MILLIGRAM, QD
     Dates: start: 20160907, end: 20160907
  24. GRANISETRON [Concomitant]
     Active Substance: GRANISETRON
     Indication: Product used for unknown indication
     Dosage: UNK, QD (1)
     Dates: start: 20160718, end: 20160724
  25. GRANISETRON [Concomitant]
     Active Substance: GRANISETRON
     Dosage: UNK, QD (1)
     Dates: start: 20160816, end: 20160822
  26. GRANISETRON [Concomitant]
     Active Substance: GRANISETRON
     Dosage: UNK, QD (1)
     Dates: start: 20160906, end: 20160912
  27. MEGESTROL [Concomitant]
     Active Substance: MEGESTROL
     Indication: Product used for unknown indication
     Dosage: UNK, QD (5)
     Dates: start: 20160620, end: 20161024
  28. RANITIDINE [Concomitant]
     Active Substance: RANITIDINE
     Indication: Product used for unknown indication
     Dosage: 50 MILLIGRAM, QD
     Dates: start: 20160719, end: 20160719
  29. RANITIDINE [Concomitant]
     Active Substance: RANITIDINE
     Dosage: 50 MILLIGRAM, QD
     Dates: start: 20160817, end: 20160817
  30. RANITIDINE [Concomitant]
     Active Substance: RANITIDINE
     Dosage: 50 MILLIGRAM, QD
     Dates: start: 20160907, end: 20160907
  31. RANITIDINE [Concomitant]
     Active Substance: RANITIDINE
     Dosage: 150 MILLIGRAM, QD
     Dates: start: 20160720, end: 20160722
  32. RANITIDINE [Concomitant]
     Active Substance: RANITIDINE
     Dosage: 150 MILLIGRAM, QD
     Dates: start: 20160818, end: 20160820
  33. RANITIDINE [Concomitant]
     Active Substance: RANITIDINE
     Dosage: 150 MILLIGRAM, QD
     Dates: start: 20160908, end: 20160910
  34. TRIAZOLAM [Concomitant]
     Active Substance: TRIAZOLAM
     Indication: Product used for unknown indication
     Dosage: 0.12 MILLIGRAM, QD
     Dates: start: 20160623, end: 20160719
  35. TRIAZOLAM [Concomitant]
     Active Substance: TRIAZOLAM
     Dosage: 0.25 MILLIGRAM, QD
     Dates: start: 20160720

REACTIONS (7)
  - Febrile neutropenia [Recovered/Resolved]
  - Neutropenia [Recovered/Resolved]
  - Skin necrosis [Recovered/Resolved]
  - Osteonecrosis of jaw [Recovered/Resolved]
  - Osteonecrosis of jaw [Recovered/Resolved]
  - Osteonecrosis of jaw [Unknown]
  - Localised oedema [Recovered/Resolved]

NARRATIVE: CASE EVENT DATE: 20160101
